FAERS Safety Report 7387904-5 (Version None)
Quarter: 2011Q2

REPORT INFORMATION
  Report Type: 
  Country: None (occurrence: None)
  Receive Date: 20110401
  Receipt Date: 20110323
  Transmission Date: 20111010
  Serious: Yes (Other)
  Sender: FDA-Public Use
  Company Number: NL-AMGEN-NLDSP2011016604

PATIENT
  Age: 68 Year
  Sex: Male

DRUGS (8)
  1. PREDNISOLON                        /00016201/ [Concomitant]
     Dosage: UNK
  2. OMEPRAZOLE [Concomitant]
     Dosage: UNK
  3. TAMSULOSIN HCL [Concomitant]
     Dosage: UNK
  4. ARCOXIA [Concomitant]
     Dosage: UNK
  5. ARAVA [Concomitant]
     Dosage: UNK
  6. CALCICHEW [Concomitant]
     Dosage: UNK
  7. ALENDRONIC ACID [Concomitant]
     Dosage: UNK
  8. ENBREL [Suspect]
     Indication: RHEUMATOID ARTHRITIS
     Dosage: 50 MG, WEEKLY
     Dates: start: 20100901

REACTIONS (1)
  - PROSTATE CANCER [None]
